FAERS Safety Report 7352902-4 (Version None)
Quarter: 2011Q1

REPORT INFORMATION
  Report Type: 
  Country: None (occurrence: None)
  Receive Date: 20110315
  Receipt Date: 20110302
  Transmission Date: 20110831
  Serious: Yes (Hospitalization, Other)
  Sender: FDA-Public Use
  Company Number: PHFR2010GB05722

PATIENT
  Sex: Male

DRUGS (1)
  1. CLOZARIL [Suspect]
     Indication: SCHIZOPHRENIA
     Dosage: UNK
     Route: 048
     Dates: start: 20061106, end: 20101119

REACTIONS (4)
  - SEPSIS [None]
  - PSYCHOTIC DISORDER [None]
  - CARDIOMYOPATHY [None]
  - MULTI-ORGAN FAILURE [None]
